FAERS Safety Report 11783625 (Version 1)
Quarter: 2015Q4

REPORT INFORMATION
  Report Type: Spontaneous
  Country: SE (occurrence: SE)
  Receive Date: 20151127
  Receipt Date: 20151127
  Transmission Date: 20160305
  Serious: Yes (Hospitalization)
  Sender: FDA-Public Use
  Company Number: SE-CONCORDIA PHARMACEUTICALS INC.-CO-LA-SE-2015-038

PATIENT
  Age: 84 Year
  Sex: Male

DRUGS (20)
  1. FOLACIN [Concomitant]
     Active Substance: FOLIC ACID
     Route: 065
  2. METOPROLOL [Concomitant]
     Active Substance: METOPROLOL
     Route: 065
  3. ENALAPRIL [Concomitant]
     Active Substance: ENALAPRIL
     Route: 065
  4. ELIQUIS [Concomitant]
     Active Substance: APIXABAN
     Route: 065
  5. BEHEPAN [Concomitant]
     Active Substance: HYDROXOCOBALAMIN
  6. ZOLADEX [Concomitant]
     Active Substance: GOSERELIN ACETATE
     Route: 065
  7. LAXIDO APELSIN [Concomitant]
     Route: 065
  8. XYLOPROCT [Concomitant]
     Route: 054
  9. STESOLID [Concomitant]
     Active Substance: DIAZEPAM
     Route: 065
  10. ACETYLCYSTEINE. [Concomitant]
     Active Substance: ACETYLCYSTEINE
     Route: 065
  11. DIGOXIN. [Suspect]
     Active Substance: DIGOXIN
     Indication: ARRHYTHMIA
     Route: 048
     Dates: start: 20120814, end: 20150724
  12. FENTANYL. [Concomitant]
     Active Substance: FENTANYL
     Route: 065
  13. XYLOPROCT [Concomitant]
     Route: 065
  14. IMOVANE [Concomitant]
     Active Substance: ZOPICLONE
     Route: 065
  15. ALVEDON [Suspect]
     Active Substance: ACETAMINOPHEN
     Indication: PRODUCT USED FOR UNKNOWN INDICATION
     Route: 048
     Dates: start: 20131205, end: 20150724
  16. FURIX [Concomitant]
     Active Substance: FUROSEMIDE
     Route: 065
  17. OXYNORM [Concomitant]
     Active Substance: OXYCODONE HYDROCHLORIDE
     Route: 065
  18. OMEPRAZOLE. [Concomitant]
     Active Substance: OMEPRAZOLE
     Route: 065
  19. SPIRONOLACTONE. [Suspect]
     Active Substance: SPIRONOLACTONE
     Indication: CARDIAC FAILURE
     Route: 048
     Dates: start: 20150702, end: 20150724
  20. KALCIPOS-D 500 MG/400 IE [Concomitant]
     Route: 065

REACTIONS (2)
  - Vomiting [Recovered/Resolved]
  - Nausea [Recovered/Resolved]

NARRATIVE: CASE EVENT DATE: 20150708
